FAERS Safety Report 16851859 (Version 1)
Quarter: 2019Q3

REPORT INFORMATION
  Report Type: Spontaneous
  Country: US (occurrence: US)
  Receive Date: 20190925
  Receipt Date: 20190925
  Transmission Date: 20191005
  Serious: No
  Sender: FDA-Public Use
  Company Number: US-TEVA-2019-US-1112447

PATIENT
  Sex: Male

DRUGS (1)
  1. ESOMEPRAZOLE MAGNESIUM DELAYED RELEASE [Suspect]
     Active Substance: ESOMEPRAZOLE MAGNESIUM

REACTIONS (2)
  - Throat irritation [Unknown]
  - Reaction to excipient [Unknown]
